FAERS Safety Report 9683941 (Version 2)
Quarter: 2013Q4

REPORT INFORMATION
  Report Type: Spontaneous
  Country: RS (occurrence: RS)
  Receive Date: 20131112
  Receipt Date: 20131127
  Transmission Date: 20140711
  Serious: Yes (Death)
  Sender: FDA-Public Use
  Company Number: RS-PFIZER INC-2013320826

PATIENT
  Age: 51 Year
  Sex: Female

DRUGS (7)
  1. SUTENT [Suspect]
     Indication: RENAL CANCER METASTATIC
     Dosage: 50 MG, 1X/DAY
     Route: 048
     Dates: start: 20130319
  2. SUTENT [Suspect]
     Dosage: 50 MG, 1X/DAY
     Route: 048
  3. SUTENT [Suspect]
     Dosage: 50 MG, 1X/DAY
     Route: 048
  4. SUTENT [Suspect]
     Dosage: 50 MG, 1X/DAY
     Route: 048
     Dates: start: 20130823, end: 20130919
  5. DUROGESIC [Concomitant]
     Indication: ABDOMINAL PAIN
     Dosage: 50 MG, UNK
  6. LACTULOSE [Concomitant]
     Indication: CONSTIPATION
     Route: 048
  7. ZEPROM [Concomitant]
     Indication: NAUSEA
     Dosage: 20 MG, 1X/DAY

REACTIONS (8)
  - Disease progression [Fatal]
  - Renal cancer metastatic [Fatal]
  - Hypertension [Unknown]
  - Hair colour changes [Unknown]
  - Abdominal pain upper [Not Recovered/Not Resolved]
  - Vomiting [Recovering/Resolving]
  - Movement disorder [Unknown]
  - Decreased appetite [Unknown]
